FAERS Safety Report 12704822 (Version 2)
Quarter: 2016Q3

REPORT INFORMATION
  Report Type: Spontaneous
  Country: US (occurrence: US)
  Receive Date: 20160831
  Receipt Date: 20160921
  Transmission Date: 20161109
  Serious: Yes (Death, Hospitalization)
  Sender: FDA-Public Use
  Company Number: US-INSYS THERAPEUTICS, INC-INS201608-000445

PATIENT
  Age: 62 Year
  Sex: Male

DRUGS (5)
  1. HYDROCODONE [Concomitant]
     Active Substance: HYDROCODONE
  2. SUBSYS [Suspect]
     Active Substance: FENTANYL
  3. FENTANYL. [Concomitant]
     Active Substance: FENTANYL
  4. SUBSYS [Suspect]
     Active Substance: FENTANYL
     Indication: HEAD AND NECK CANCER
     Route: 060
     Dates: start: 20151231, end: 20160813
  5. MORPHINE [Concomitant]
     Active Substance: MORPHINE

REACTIONS (2)
  - Neoplasm progression [Fatal]
  - Hepatic failure [Fatal]

NARRATIVE: CASE EVENT DATE: 20160813
